FAERS Safety Report 16974733 (Version 1)
Quarter: 2019Q4

REPORT INFORMATION
  Report Type: Spontaneous
  Country: DK (occurrence: DK)
  Receive Date: 20191030
  Receipt Date: 20191030
  Transmission Date: 20200122
  Serious: Yes (Other)
  Sender: FDA-Public Use
  Company Number: DK-SA-2019SA298235

PATIENT
  Age: 30 Year
  Sex: Male
  Weight: 78 kg

DRUGS (3)
  1. ALPROLIX [Suspect]
     Active Substance: EFTRENONACOG ALFA
     Dosage: 4000 IU, QW
     Dates: start: 20180606
  2. ALPROLIX [Suspect]
     Active Substance: EFTRENONACOG ALFA
     Indication: FACTOR IX DEFICIENCY
     Dosage: 2000 IU, QW
     Dates: start: 20180522
  3. DERMOVATE [Concomitant]
     Active Substance: CLOBETASOL

REACTIONS (2)
  - Cataract subcapsular [Not Recovered/Not Resolved]
  - Visual impairment [Not Recovered/Not Resolved]

NARRATIVE: CASE EVENT DATE: 2018
